FAERS Safety Report 18131395 (Version 2)
Quarter: 2020Q3

REPORT INFORMATION
  Report Type: Spontaneous
  Country: JP (occurrence: JP)
  Receive Date: 20200810
  Receipt Date: 20200817
  Transmission Date: 20201103
  Serious: Yes (Life-Threatening, Hospitalization, Other)
  Sender: FDA-Public Use
  Company Number: JP-PFIZER INC-2020301807

PATIENT
  Age: 49 Year
  Sex: Male

DRUGS (8)
  1. DOXORUBICIN HCL [Suspect]
     Active Substance: DOXORUBICIN HYDROCHLORIDE
     Indication: NON-HODGKIN^S LYMPHOMA
     Dosage: UNK, CYCLIC (THE TOTAL DOSE OF ANTHRACYCLINE ANTIBIOTICS WAS 250 MG/M^2)
  2. BLEOMYCIN [Suspect]
     Active Substance: BLEOMYCIN SULFATE
     Indication: NON-HODGKIN^S LYMPHOMA
     Dosage: UNK, CYCLIC
  3. VINBLASTINE [Suspect]
     Active Substance: VINBLASTINE
     Indication: NON-HODGKIN^S LYMPHOMA
     Dosage: UNK, CYCLIC
  4. CYCLOPHOSPHAMIDE. [Suspect]
     Active Substance: CYCLOPHOSPHAMIDE
     Indication: NON-HODGKIN^S LYMPHOMA
     Dosage: UNK, CYCLIC
  5. VINCRISTINE [Suspect]
     Active Substance: VINCRISTINE
     Indication: NON-HODGKIN^S LYMPHOMA
     Dosage: UNK, CYCLIC
  6. DACARBAZINE. [Suspect]
     Active Substance: DACARBAZINE
     Indication: NON-HODGKIN^S LYMPHOMA
     Dosage: UNK, CYCLIC
  7. PREDNISONE. [Suspect]
     Active Substance: PREDNISONE
     Indication: NON-HODGKIN^S LYMPHOMA
     Dosage: UNK, CYCLIC
  8. DOXORUBICIN HCL [Suspect]
     Active Substance: DOXORUBICIN HYDROCHLORIDE
     Indication: NON-HODGKIN^S LYMPHOMA
     Dosage: UNK, CYCLIC (THE TOTAL DOSE OF ANTHRACYCLINE ANTIBIOTICS WAS 250 MG/M^2)

REACTIONS (1)
  - Congestive cardiomyopathy [Unknown]
